FAERS Safety Report 14926580 (Version 1)
Quarter: 2018Q2

REPORT INFORMATION
  Report Type: Spontaneous
  Country: FR (occurrence: FR)
  Receive Date: 20180523
  Receipt Date: 20180523
  Transmission Date: 20180711
  Serious: Yes (Other)
  Sender: FDA-Public Use
  Company Number: FR-MERCK KGAA-2048263

PATIENT
  Age: 67 Year
  Sex: Female

DRUGS (1)
  1. NOVOTHYROX [Suspect]
     Active Substance: LEVOTHYROXINE SODIUM
     Indication: PRODUCT USED FOR UNKNOWN INDICATION
     Dates: start: 201705

REACTIONS (23)
  - Wound [None]
  - Performance status decreased [None]
  - General physical condition abnormal [None]
  - Slow response to stimuli [None]
  - Blood triglycerides increased [Not Recovered/Not Resolved]
  - Anxiety [None]
  - Mental impairment [None]
  - Balance disorder [None]
  - Apathy [None]
  - Fatigue [None]
  - Decreased interest [None]
  - Pathological doubt [None]
  - Insomnia [None]
  - Dizziness [None]
  - Fall [None]
  - Impaired driving ability [None]
  - Depression [None]
  - Muscle spasms [None]
  - Asthenia [None]
  - Loss of personal independence in daily activities [None]
  - Sleep disorder [None]
  - Somnolence [None]
  - Headache [None]

NARRATIVE: CASE EVENT DATE: 20170509
